FAERS Safety Report 8309674-6 (Version None)
Quarter: 2012Q2

REPORT INFORMATION
  Report Type: 
  Country: None (occurrence: None)
  Receive Date: 20120423
  Receipt Date: 20120409
  Transmission Date: 20120825
  Serious: Yes (Hospitalization)
  Sender: FDA-Public Use
  Company Number: 12-062C

PATIENT
  Age: 46 Year
  Sex: Male
  Weight: 108.8633 kg

DRUGS (3)
  1. ANTIBIOTICS [Suspect]
  2. ZYRTEC [Suspect]
     Indication: SINUSITIS
     Dosage: ORAL
     Route: 048
     Dates: start: 20120326, end: 20120407
  3. LISINOPRIL [Suspect]

REACTIONS (8)
  - CHOKING [None]
  - DIZZINESS [None]
  - APPARENT DEATH [None]
  - OROPHARYNGEAL SWELLING [None]
  - IMPAIRED WORK ABILITY [None]
  - REGURGITATION [None]
  - DYSPHAGIA [None]
  - VOCAL CORD PARESIS [None]
